FAERS Safety Report 10064391 (Version 1)
Quarter: 2014Q2

REPORT INFORMATION
  Report Type: Spontaneous
  Country: US (occurrence: None)
  Receive Date: 20140407
  Receipt Date: 20140407
  Transmission Date: 20141212
  Serious: Yes (Disabling)
  Sender: FDA-Public Use
  Company Number: None

PATIENT
  Age: 54 Year
  Sex: Female
  Weight: 56.7 kg

DRUGS (1)
  1. LEVOFLOXACIN 500 MG [Suspect]
     Indication: SINUSITIS
     Dosage: 1, TWICE DAILY, TAKEN BY MOUTH
     Route: 048
     Dates: start: 20140128, end: 20140204

REACTIONS (2)
  - Myalgia [None]
  - Muscle spasms [None]
